FAERS Safety Report 8093983-2 (Version None)
Quarter: 2012Q1

REPORT INFORMATION
  Report Type: 
  Country: None (occurrence: None)
  Receive Date: 20120130
  Receipt Date: 20120120
  Transmission Date: 20120608
  Serious: Yes (Life-Threatening)
  Sender: FDA-Public Use
  Company Number: US-BRISTOL-MYERS SQUIBB COMPANY-16365827

PATIENT
  Age: 89 Year
  Sex: Female
  Weight: 65 kg

DRUGS (4)
  1. METFORMIN HCL [Suspect]
  2. HYDROCHLOROTHIAZIDE [Suspect]
  3. LISINOPRIL [Suspect]
  4. SIMVASTATIN [Suspect]

REACTIONS (2)
  - CARBON MONOXIDE POISONING [None]
  - BLOOD GLUCOSE ABNORMAL [None]
